FAERS Safety Report 24765316 (Version 1)
Quarter: 2024Q4

REPORT INFORMATION
  Report Type: Spontaneous
  Country: GB (occurrence: GB)
  Receive Date: 20241223
  Receipt Date: 20241223
  Transmission Date: 20250115
  Serious: Yes (Other)
  Sender: AUROBINDO
  Company Number: GB-MHRA-TPP19167278C4477759YC1733845377169

PATIENT
  Age: 69 Year
  Sex: Male
  Weight: 80 kg

DRUGS (27)
  1. RAMIPRIL [Suspect]
     Active Substance: RAMIPRIL
     Indication: Ill-defined disorder
     Dosage: UNK
     Route: 065
     Dates: start: 20241118
  2. RAMIPRIL [Suspect]
     Active Substance: RAMIPRIL
     Indication: Adverse drug reaction
     Dosage: UNK
     Route: 048
     Dates: start: 20241118, end: 20241118
  3. MAGNESIUM ASPARTATE [Concomitant]
     Active Substance: MAGNESIUM ASPARTATE
     Indication: Ill-defined disorder
     Dosage: 1 DOSAGE FORM, TWO TIMES A DAY [1 SACHET TWICE DAILY FOR 5 DAYS]
     Route: 065
     Dates: start: 20241008
  4. DOXYCYCLINE [Concomitant]
     Active Substance: DOXYCYCLINE
     Indication: Ill-defined disorder
     Dosage: UNK UNK, DAILY [TWO NOW THEN ONE DAILY]
     Route: 065
     Dates: start: 20241030
  5. PREDNISOLONE [Concomitant]
     Active Substance: PREDNISOLONE
     Indication: Ill-defined disorder
     Dosage: 8 DOSAGE FORM, ONCE A DAY [TAKE 8 TABLETS EACH DAY FOR 5 DAYS]
     Route: 065
     Dates: start: 20241030
  6. ISOSORBIDE MONONITRATE [Concomitant]
     Active Substance: ISOSORBIDE MONONITRATE
     Indication: Ill-defined disorder
     Dosage: 2 DOSAGE FORM, TWO TIMES A DAY [TAKE TWO TWICE DAILY, TO USE INSTEAD OF THE 20...]
     Route: 065
     Dates: start: 20240509
  7. RAMIPRIL [Concomitant]
     Active Substance: RAMIPRIL
     Indication: Ill-defined disorder
     Dosage: 1 DOSAGE FORM, DAILY [TAKE ONE DAILY]
     Route: 065
     Dates: start: 20241108
  8. HYDROXOCOBALAMIN [Concomitant]
     Active Substance: HYDROXOCOBALAMIN
     Indication: Ill-defined disorder
     Dosage: UNK [IM INJECTION EVERY 3MONTHS]
     Route: 030
     Dates: start: 20240903
  9. CEPHALEXIN [Concomitant]
     Active Substance: CEPHALEXIN
     Indication: Ill-defined disorder
     Dosage: 1 DOSAGE FORM, 3 TIMES A DAY [TAKE ONE 3 TIMES/DAY]
     Route: 065
     Dates: start: 20241120
  10. COCODAMOL [Concomitant]
     Active Substance: ACETAMINOPHEN\CODEINE PHOSPHATE
     Indication: Ill-defined disorder
     Dosage: UNK UNK, FOUR TIMES/DAY [TAKE 1 OR 2 4 TIMES/DAY WHEN REQUIRED]
     Route: 065
     Dates: start: 20241205
  11. ACETYLCYSTEINE [Concomitant]
     Active Substance: ACETYLCYSTEINE
     Indication: Ill-defined disorder
     Dosage: 1 DOSAGE FORM, DAILY [TAKE ONE DAILY]
     Route: 065
     Dates: start: 20240509
  12. FLUTICASONE FUROATE\SALMETEROL XINAFOATE [Concomitant]
     Active Substance: FLUTICASONE FUROATE\SALMETEROL XINAFOATE
     Indication: Ill-defined disorder
     Dosage: 2 DOSAGE FORM, TWO TIMES A DAY [INHALE 2 DOSES TWICE DAILY]
     Route: 065
     Dates: start: 20240509
  13. AMITRIPTYLINE HYDROCHLORIDE [Concomitant]
     Active Substance: AMITRIPTYLINE HYDROCHLORIDE
     Indication: Ill-defined disorder
     Dosage: 1 DOSAGE FORM, ONCE A DAY [TAKE ONE AT NIGHT WHEN REQUIRED]
     Route: 065
     Dates: start: 20240509
  14. AMLODIPINE [Concomitant]
     Active Substance: AMLODIPINE BESYLATE
     Indication: Ill-defined disorder
     Dosage: 1 DOSAGE FORM, DAILY [TAKE ONE DAILY]
     Route: 065
     Dates: start: 20240509
  15. ASPIRIN [Concomitant]
     Active Substance: ASPIRIN
     Indication: Ill-defined disorder
     Dosage: 1 DOSAGE FORM, DAILY [ONE TO BE TAKEN DAILY]
     Route: 065
     Dates: start: 20240509
  16. CARBOCYSTEINE [Concomitant]
     Active Substance: CARBOCYSTEINE
     Indication: Ill-defined disorder
     Dosage: 2 DOSAGE FORM, 3 TIMES A DAY [TWO TO BE TAKEN THREE TIMES DAILY]
     Route: 065
     Dates: start: 20240509
  17. EMPAGLIFLOZIN [Concomitant]
     Active Substance: EMPAGLIFLOZIN
     Indication: Ill-defined disorder
     Dosage: 1 DOSAGE FORM, DAILY [TAKE ONE DAILY]
     Route: 065
     Dates: start: 20240509
  18. NITROGLYCERIN [Concomitant]
     Active Substance: NITROGLYCERIN
     Indication: Ill-defined disorder
     Dosage: UNK UNK, AS NECESSARY [AS REQUIRED]
     Route: 065
     Dates: start: 20240509
  19. IVABRADINE [Concomitant]
     Active Substance: IVABRADINE
     Indication: Ill-defined disorder
     Dosage: 1 DOSAGE FORM, TWO TIMES A DAY [TAKE ONE TWICE DAILY]
     Route: 065
     Dates: start: 20240509
  20. POLYETHYLENE GLYCOL 3350\POTASSIUM CHLORIDE\SODIUM BICARBONATE\SODIUM [Concomitant]
     Active Substance: POLYETHYLENE GLYCOL 3350\POTASSIUM CHLORIDE\SODIUM BICARBONATE\SODIUM CHLORIDE
     Indication: Ill-defined disorder
     Dosage: 2 DOSAGE FORM, ONCE A DAY [TWO TO BE TAKEN EACH NIGHT]
     Route: 065
     Dates: start: 20240509
  21. LOPERAMIDE [Concomitant]
     Active Substance: LOPERAMIDE
     Indication: Ill-defined disorder
     Dosage: UNK UNK, AS DIRECTED
     Route: 065
     Dates: start: 20240509
  22. METFORMIN [Concomitant]
     Active Substance: METFORMIN HYDROCHLORIDE
     Indication: Ill-defined disorder
     Dosage: 2 DOSAGE FORM, TWO TIMES A DAY
     Route: 065
     Dates: start: 20240509
  23. RANOLAZINE [Concomitant]
     Active Substance: RANOLAZINE
     Indication: Ill-defined disorder
     Dosage: 1 DOSAGE FORM, TWO TIMES A DAY [TAKE ONE TWICE DAILY]
     Route: 065
     Dates: start: 20240509
  24. ALBUTEROL [Concomitant]
     Active Substance: ALBUTEROL
     Indication: Ill-defined disorder
     Dosage: UNK UNK, AS NECESSARY
     Route: 065
     Dates: start: 20240509
  25. CALCIPOTRIENE [Concomitant]
     Active Substance: CALCIPOTRIENE
     Indication: Ill-defined disorder
     Dosage: UNK UNK, ONCE A DAY [APPLY ONCE DAILY]
     Route: 065
     Dates: start: 20240621
  26. FAMOTIDINE [Concomitant]
     Active Substance: FAMOTIDINE
     Indication: Ill-defined disorder
     Dosage: 1 DOSAGE FORM, DAILY [TAKE ONE DAILY]
     Route: 065
     Dates: start: 20240821
  27. ATORVASTATIN [Concomitant]
     Active Substance: ATORVASTATIN
     Indication: Ill-defined disorder
     Dosage: 1 DOSAGE FORM, DAILY [TAKE ONE DAILY]
     Route: 065
     Dates: start: 20240821

REACTIONS (1)
  - Oral mucosal blistering [Recovered/Resolved]

NARRATIVE: CASE EVENT DATE: 20241118
